FAERS Safety Report 25838824 (Version 1)
Quarter: 2025Q3

REPORT INFORMATION
  Report Type: Spontaneous
  Country: JP (occurrence: JP)
  Receive Date: 20250924
  Receipt Date: 20250924
  Transmission Date: 20251021
  Serious: Yes (Other)
  Sender: SANDOZ
  Company Number: JP-Sandoz Group AG-00215671

PATIENT
  Age: 69 Year
  Sex: Male

DRUGS (3)
  1. XYLOCAINE [Suspect]
     Active Substance: LIDOCAINE HYDROCHLORIDE
     Indication: Analgesic therapy
     Route: 002
  2. Azulen g [Concomitant]
     Indication: Analgesic therapy
     Route: 002
  3. Distilled water [Concomitant]
     Indication: Analgesic therapy
     Route: 002

REACTIONS (3)
  - Tongue neoplasm malignant stage unspecified [Unknown]
  - Malignant neoplasm progression [Unknown]
  - Oral pain [Unknown]
